FAERS Safety Report 4702480-0 (Version None)
Quarter: 2005Q2

REPORT INFORMATION
  Report Type: 
  Country: None (occurrence: None)
  Receive Date: 20050624
  Receipt Date: 20050531
  Transmission Date: 20051028
  Serious: Yes (Death)
  Sender: FDA-Public Use
  Company Number: WAES 0506TUR00003

PATIENT
  Age: 7 Month
  Sex: Female

DRUGS (2)
  1. COSMEGEN [Suspect]
     Indication: NEPHROBLASTOMA
  2. VINCRISTINE SULFATE [Concomitant]

REACTIONS (1)
  - DEATH [None]
